FAERS Safety Report 13395785 (Version 7)
Quarter: 2018Q1

REPORT INFORMATION
  Report Type: Report from Study
  Country: CA (occurrence: CA)
  Receive Date: 20170403
  Receipt Date: 20180305
  Transmission Date: 20180508
  Serious: Yes (Other)
  Sender: FDA-Public Use
  Company Number: PHHY2015CA153503

PATIENT
  Age: 42 Year
  Sex: Male

DRUGS (11)
  1. DOVOBET [Concomitant]
     Active Substance: BETAMETHASONE\CALCIPOTRIENE
     Indication: PRODUCT USED FOR UNKNOWN INDICATION
     Dosage: UNK
     Route: 065
  2. COSENTYX [Suspect]
     Active Substance: SECUKINUMAB
     Dosage: 300 MG, QMO
     Route: 058
     Dates: start: 201610
  3. COSENTYX [Suspect]
     Active Substance: SECUKINUMAB
     Dosage: 300 MG, QMO
     Route: 058
     Dates: start: 20161121
  4. COSENTYX [Suspect]
     Active Substance: SECUKINUMAB
     Dosage: 300 MG, QMO
     Route: 058
     Dates: start: 201706
  5. COSENTYX [Suspect]
     Active Substance: SECUKINUMAB
     Indication: PSORIASIS
     Dosage: 300 MG, QW
     Route: 058
     Dates: start: 20151103, end: 20151124
  6. HUMIRA [Concomitant]
     Active Substance: ADALIMUMAB
     Indication: PRODUCT USED FOR UNKNOWN INDICATION
     Dosage: UNK
     Route: 065
  7. ACITRETIN. [Concomitant]
     Active Substance: ACITRETIN
     Indication: PRODUCT USED FOR UNKNOWN INDICATION
     Dosage: UNK
     Route: 065
  8. CLARITIN [Concomitant]
     Active Substance: LORATADINE
     Indication: PRODUCT USED FOR UNKNOWN INDICATION
     Dosage: UNK
     Route: 065
  9. COSENTYX [Suspect]
     Active Substance: SECUKINUMAB
     Dosage: 300 MG, QMO
     Route: 058
     Dates: start: 2017
  10. COSENTYX [Suspect]
     Active Substance: SECUKINUMAB
     Dosage: 300 MG, QMO
     Route: 058
     Dates: start: 20151201
  11. CALCIPOTRIENE AND BETAMETHASONE DIPROPIONATE [Concomitant]
     Active Substance: BETAMETHASONE DIPROPIONATE\CALCIPOTRIENE
     Indication: PRODUCT USED FOR UNKNOWN INDICATION
     Dosage: UNK
     Route: 065

REACTIONS (25)
  - Respiratory tract infection [Unknown]
  - Sinusitis [Not Recovered/Not Resolved]
  - Fatigue [Not Recovered/Not Resolved]
  - Papule [Unknown]
  - Acne [Unknown]
  - Skin hypertrophy [Unknown]
  - Nasal congestion [Unknown]
  - Psoriasis [Unknown]
  - Muscular weakness [Recovering/Resolving]
  - Pyrexia [Unknown]
  - Erythema [Recovered/Resolved]
  - Influenza [Unknown]
  - Skin mass [Unknown]
  - Nasopharyngitis [Unknown]
  - Bronchitis [Unknown]
  - Skin plaque [Unknown]
  - Diarrhoea [Recovering/Resolving]
  - Pneumonia [Unknown]
  - Myalgia [Unknown]
  - Chills [Recovering/Resolving]
  - Skin fissures [Unknown]
  - Productive cough [Recovered/Resolved]
  - Dry skin [Unknown]
  - Secretion discharge [Unknown]
  - Mucosal discolouration [Unknown]

NARRATIVE: CASE EVENT DATE: 201511
